FAERS Safety Report 14474724 (Version 1)
Quarter: 2018Q1

REPORT INFORMATION
  Report Type: Spontaneous
  Country: US (occurrence: US)
  Receive Date: 20180201
  Receipt Date: 20180201
  Transmission Date: 20180509
  Serious: Yes (Other)
  Sender: FDA-Public Use
  Company Number: US-TEVA-2018-US-853830

PATIENT
  Age: 64 Year
  Sex: Male

DRUGS (2)
  1. QUININE [Suspect]
     Active Substance: QUININE
     Indication: BABESIOSIS
     Route: 065
  2. CLINDAMYCIN. [Suspect]
     Active Substance: CLINDAMYCIN
     Indication: BABESIOSIS
     Route: 065

REACTIONS (3)
  - Bradycardia [Unknown]
  - Electrocardiogram U wave present [Unknown]
  - Atrioventricular block [Unknown]
